FAERS Safety Report 5765623-6 (Version None)
Quarter: 2008Q2

REPORT INFORMATION
  Report Type: 
  Country: None (occurrence: None)
  Receive Date: 20080606
  Receipt Date: 20080606
  Transmission Date: 20081010
  Serious: No
  Sender: FDA-Public Use
  Company Number: None

PATIENT
  Age: 67 Year
  Sex: Female
  Weight: 81.6475 kg

DRUGS (1)
  1. CELEBREX 200 MG. PFZIER [Suspect]
     Indication: POLYMYALGIA RHEUMATICA
     Dosage: 200 MG. TWICE A DAY PO
     Route: 048
     Dates: start: 20000501, end: 20080501

REACTIONS (6)
  - DYSPEPSIA [None]
  - DYSPNOEA [None]
  - FLUID RETENTION [None]
  - GASTROOESOPHAGEAL REFLUX DISEASE [None]
  - HYPERTENSION [None]
  - VISUAL DISTURBANCE [None]
